FAERS Safety Report 8462363-X (Version None)
Quarter: 2012Q2

REPORT INFORMATION
  Report Type: 
  Country: None (occurrence: None)
  Receive Date: 20120625
  Receipt Date: 20120618
  Transmission Date: 20120825
  Serious: Yes (Other)
  Sender: FDA-Public Use
  Company Number: CA-UCBSA-049306

PATIENT
  Age: 55 Year
  Sex: Female
  Weight: 81.8 kg

DRUGS (5)
  1. CIMZIA [Suspect]
     Route: 058
     Dates: start: 20110702
  2. ATACAND [Concomitant]
     Indication: BLOOD PRESSURE
     Route: 048
  3. CIMZIA [Suspect]
     Indication: RHEUMATOID ARTHRITIS
     Dosage: NO. OF INTAKES: EVERY 2 WEEKS X3
     Route: 058
     Dates: start: 20110521, end: 20110618
  4. HYDROCHLOROTHIAZIDE [Concomitant]
     Indication: BLOOD PRESSURE
     Route: 048
  5. MYLAN-AMLODIPINE [Concomitant]
     Dosage: AT BEDTIME
     Route: 048

REACTIONS (3)
  - SINUSITIS [None]
  - MASS [None]
  - ARTHRALGIA [None]
